FAERS Safety Report 5615202-6 (Version None)
Quarter: 2008Q1

REPORT INFORMATION
  Report Type: 
  Country: None (occurrence: None)
  Receive Date: 20080204
  Receipt Date: 20080204
  Transmission Date: 20080703
  Serious: Yes (Life-Threatening)
  Sender: FDA-Public Use
  Company Number: None

PATIENT
  Age: 75 Year
  Sex: Male

DRUGS (1)
  1. CALCITONIN [Suspect]
     Indication: OSTEOPOROSIS
     Dosage: 200UNITS EVERY DAY NASAL
     Route: 045
     Dates: start: 20060628, end: 20071209

REACTIONS (3)
  - ANGIOEDEMA [None]
  - BLOOD CREATININE INCREASED [None]
  - PNEUMONIA [None]
